FAERS Safety Report 4965924-5 (Version None)
Quarter: 2006Q2

REPORT INFORMATION
  Report Type: 
  Country: None (occurrence: None)
  Receive Date: 20060403
  Receipt Date: 20060320
  Transmission Date: 20061013
  Serious: Yes (Hospitalization)
  Sender: FDA-Public Use
  Company Number: 2006035023

PATIENT
  Age: 47 Year
  Sex: Male

DRUGS (6)
  1. ATORVASTATIN CALCIUM [Suspect]
     Indication: MYOCARDIAL ISCHAEMIA
     Dosage: (20 MG,), ORAL
     Route: 048
     Dates: start: 20010101
  2. METOCARD              (METOPROLOL TARTRATE) [Concomitant]
  3. SIMVASTATIN [Concomitant]
  4. POLOPIRYNA              (ACETYLSALICYLIC ACID) [Concomitant]
  5. FENOFIBRATE [Concomitant]
  6. ISOSORBIDE MONONITRATE [Concomitant]

REACTIONS (9)
  - BLOOD CHOLESTEROL INCREASED [None]
  - BLOOD PRESSURE INCREASED [None]
  - BLOOD TRIGLYCERIDES INCREASED [None]
  - CORONARY ARTERY SURGERY [None]
  - DYSPNOEA EXERTIONAL [None]
  - FATIGUE [None]
  - HAEMORRHOIDS [None]
  - MYOCARDIAL ISCHAEMIA [None]
  - TACHYCARDIA [None]
